FAERS Safety Report 11826994 (Version 1)
Quarter: 2015Q4

REPORT INFORMATION
  Report Type: Spontaneous
  Country: KR (occurrence: KR)
  Receive Date: 20151211
  Receipt Date: 20151211
  Transmission Date: 20160305
  Serious: Yes (Other)
  Sender: FDA-Public Use
  Company Number: KR-PFIZER INC-2015413907

PATIENT
  Age: 44 Year
  Sex: Male

DRUGS (1)
  1. CHAMPIX [Suspect]
     Active Substance: VARENICLINE TARTRATE
     Indication: SMOKING CESSATION THERAPY
     Dosage: UNK
     Route: 048
     Dates: start: 201510, end: 2015

REACTIONS (2)
  - Device failure [Recovered/Resolved]
  - Implant site inflammation [Recovering/Resolving]

NARRATIVE: CASE EVENT DATE: 2015
